FAERS Safety Report 20470226 (Version 2)
Quarter: 2022Q1

REPORT INFORMATION
  Report Type: Spontaneous
  Country: IT (occurrence: IT)
  Receive Date: 20220214
  Receipt Date: 20220222
  Transmission Date: 20220424
  Serious: Yes (Death, Hospitalization, Other)
  Sender: FDA-Public Use
  Company Number: IT-ALXN-A202201757

PATIENT
  Age: 65 Year
  Sex: Male
  Weight: 80 kg

DRUGS (1)
  1. SOLIRIS [Suspect]
     Active Substance: ECULIZUMAB
     Indication: Atypical haemolytic uraemic syndrome
     Dosage: 1200 MG, UNK
     Route: 042
     Dates: start: 20211022, end: 20211206

REACTIONS (7)
  - Meningitis Escherichia [Fatal]
  - Multiple organ dysfunction syndrome [Fatal]
  - Septic shock [Fatal]
  - Graft versus host disease [Fatal]
  - Atypical haemolytic uraemic syndrome [Fatal]
  - Condition aggravated [Fatal]
  - Allogenic stem cell transplantation [Fatal]

NARRATIVE: CASE EVENT DATE: 20211207
